FAERS Safety Report 6472189-4 (Version None)
Quarter: 2009Q4

REPORT INFORMATION
  Report Type: 
  Country: None (occurrence: None)
  Receive Date: 20091203
  Receipt Date: 20091127
  Transmission Date: 20100525
  Serious: Yes (Death, Other)
  Sender: FDA-Public Use
  Company Number: GB-AMGEN-UK371763

PATIENT
  Sex: Male

DRUGS (12)
  1. NPLATE [Suspect]
     Indication: IDIOPATHIC THROMBOCYTOPENIC PURPURA
     Route: 058
     Dates: start: 20091002
  2. THIAMINE [Concomitant]
     Route: 047
  3. CODEINE PHOSPHATE [Concomitant]
     Route: 048
  4. LANSOPRAZOLE [Concomitant]
     Route: 048
  5. PARACETAMOL [Concomitant]
     Route: 048
  6. TRANEXAMIC ACID [Concomitant]
     Route: 048
  7. DEXAMETHASONE TAB [Concomitant]
     Route: 048
  8. NICOTINE TRANSDERMAL [Concomitant]
     Route: 061
  9. AMLODIPINE [Concomitant]
     Route: 048
  10. GLICLAZIDE [Concomitant]
     Route: 048
  11. METFORMIN HCL [Concomitant]
     Route: 048
  12. ANTIBIOTICS [Concomitant]
     Route: 042

REACTIONS (6)
  - CONJUNCTIVAL HAEMORRHAGE [None]
  - DEATH [None]
  - DRUG INEFFECTIVE [None]
  - GASTROINTESTINAL HAEMORRHAGE [None]
  - GENERAL PHYSICAL HEALTH DETERIORATION [None]
  - HAEMORRHAGE [None]
